FAERS Safety Report 12223124 (Version 4)
Quarter: 2016Q2

REPORT INFORMATION
  Report Type: Spontaneous
  Country: US (occurrence: US)
  Receive Date: 20160330
  Receipt Date: 20160523
  Transmission Date: 20160815
  Serious: No
  Sender: FDA-Public Use
  Company Number: US-PFIZER INC-2016136450

PATIENT
  Age: 67 Year
  Sex: Male
  Weight: 91 kg

DRUGS (4)
  1. DEPO-MEDROL [Suspect]
     Active Substance: METHYLPREDNISOLONE ACETATE
     Indication: SINUSITIS
     Dosage: 80 MG, UNK (ONCE)
     Route: 030
     Dates: start: 20160229
  2. ZYTIGA [Concomitant]
     Active Substance: ABIRATERONE ACETATE
     Indication: PROSTATE CANCER
     Dosage: UNK
  3. LUPRON [Concomitant]
     Active Substance: LEUPROLIDE ACETATE
     Indication: PROSTATE CANCER
     Dosage: UNK
  4. ZYTIGA [Concomitant]
     Active Substance: ABIRATERONE ACETATE
     Dosage: 250 MG, UNK

REACTIONS (3)
  - Product colour issue [Not Recovered/Not Resolved]
  - Drug ineffective for unapproved indication [Unknown]
  - Poor quality drug administered [Not Recovered/Not Resolved]

NARRATIVE: CASE EVENT DATE: 20160229
